FAERS Safety Report 6230354-5 (Version None)
Quarter: 2009Q2

REPORT INFORMATION
  Report Type: 
  Country: None (occurrence: None)
  Receive Date: 20090611
  Receipt Date: 20090604
  Transmission Date: 20091009
  Serious: Yes (Other)
  Sender: FDA-Public Use
  Company Number: GXKR2009BR06632

PATIENT
  Sex: Female

DRUGS (1)
  1. TRILAX  (CAFFEINE, CARISOPRODOL, DICLOFENAC, PARACETAMOL) [Suspect]
     Dosage: ORAL
     Route: 048

REACTIONS (1)
  - LARYNGEAL OEDEMA [None]
